FAERS Safety Report 16011016 (Version 1)
Quarter: 2019Q1

REPORT INFORMATION
  Report Type: Spontaneous
  Country: GB (occurrence: GB)
  Receive Date: 20190227
  Receipt Date: 20190227
  Transmission Date: 20190418
  Serious: Yes (Other)
  Sender: FDA-Public Use
  Company Number: GB-ACCORD-109265

PATIENT
  Age: 63 Year
  Sex: Female
  Weight: 69.85 kg

DRUGS (8)
  1. BENDROFLUMETHIAZIDE [Concomitant]
     Active Substance: BENDROFLUMETHIAZIDE
  2. VENTOLIN [Concomitant]
     Active Substance: ALBUTEROL SULFATE
     Dosage: BEEN TAKING LONG TERM
  3. SIMVASTATIN. [Concomitant]
     Active Substance: SIMVASTATIN
  4. RAMIPRIL. [Suspect]
     Active Substance: RAMIPRIL
     Indication: HYPERTENSION
     Dates: start: 20180718, end: 20180720
  5. NAPROXEN. [Concomitant]
     Active Substance: NAPROXEN
     Indication: PROCEDURAL PAIN
     Dosage: 500MG TIMES 2 DAILY. TAKING LAST 10 YEARS
  6. CLENIL MODULITE [Concomitant]
     Active Substance: BECLOMETHASONE DIPROPIONATE
     Dosage: MORNING AND EVENING, BEEN TAKING LONG TERM
  7. TRAMADOL. [Concomitant]
     Active Substance: TRAMADOL
     Indication: PROCEDURAL PAIN
     Dosage: STOPPED A WEEK BEFORE STARTING RAMIPRIL
  8. OMEPRAZOLE. [Concomitant]
     Active Substance: OMEPRAZOLE

REACTIONS (3)
  - Mouth ulceration [Recovering/Resolving]
  - Tongue ulceration [Recovering/Resolving]
  - Gingival ulceration [Recovering/Resolving]

NARRATIVE: CASE EVENT DATE: 20180719
